FAERS Safety Report 11893138 (Version 2)
Quarter: 2016Q1

REPORT INFORMATION
  Report Type: Report from Study
  Country: GB (occurrence: GB)
  Receive Date: 20160106
  Receipt Date: 20160118
  Transmission Date: 20160526
  Serious: Yes (Other)
  Sender: FDA-Public Use
  Company Number: GB-UCBSA-2015043632

PATIENT
  Sex: Female

DRUGS (4)
  1. LEVETIRACETAM. [Suspect]
     Active Substance: LEVETIRACETAM
     Indication: EPILEPSY
     Dosage: 1000 MG, 2X/DAY (BID)
  2. CLOBAZAM [Concomitant]
     Active Substance: CLOBAZAM
     Indication: PRODUCT USED FOR UNKNOWN INDICATION
     Dosage: UNK
  3. TOPAMAX [Suspect]
     Active Substance: TOPIRAMATE
     Indication: HEMIPLEGIC MIGRAINE
     Dosage: UNK
  4. TOPAMAX [Suspect]
     Active Substance: TOPIRAMATE
     Dosage: DOSE WEANING

REACTIONS (11)
  - Ocular discomfort [Unknown]
  - Myoclonic epilepsy [Unknown]
  - Hemiplegic migraine [Unknown]
  - Headache [Unknown]
  - Malaise [Unknown]
  - Brain neoplasm [Unknown]
  - Petit mal epilepsy [Unknown]
  - Nausea [Unknown]
  - Generalised tonic-clonic seizure [Unknown]
  - Head discomfort [Unknown]
  - Vertigo [Unknown]
